FAERS Safety Report 19468604 (Version 1)
Quarter: 2021Q2

REPORT INFORMATION
  Report Type: Spontaneous
  Country: DE (occurrence: DE)
  Receive Date: 20210628
  Receipt Date: 20210628
  Transmission Date: 20210717
  Serious: Yes (Hospitalization)
  Sender: FDA-Public Use
  Company Number: DE-JNJFOC-20210654855

PATIENT
  Age: 74 Year
  Sex: Female

DRUGS (4)
  1. METFORMIN [METFORMIN HYDROCHLORIDE] [Concomitant]
     Active Substance: METFORMIN HYDROCHLORIDE
  2. NORTASE [Suspect]
     Active Substance: PANCRELIPASE
     Indication: PANCREATIC FAILURE
     Route: 048
  3. NORTASE [Suspect]
     Active Substance: PANCRELIPASE
     Route: 048
  4. IMODIUM [Suspect]
     Active Substance: LOPERAMIDE HYDROCHLORIDE
     Indication: PRODUCT USED FOR UNKNOWN INDICATION
     Route: 065

REACTIONS (4)
  - Flatulence [Unknown]
  - Diarrhoea [Unknown]
  - Haematochezia [Unknown]
  - Vomiting [Unknown]

NARRATIVE: CASE EVENT DATE: 20210609
